FAERS Safety Report 8294776-3 (Version None)
Quarter: 2012Q2

REPORT INFORMATION
  Report Type: 
  Country: None (occurrence: None)
  Receive Date: 20120418
  Receipt Date: 20120412
  Transmission Date: 20120825
  Serious: Yes (Hospitalization, Other)
  Sender: FDA-Public Use
  Company Number: FR-PFIZER INC-2012090841

PATIENT
  Age: 56 Year
  Sex: Male

DRUGS (15)
  1. SUTENT [Suspect]
     Indication: METASTASES TO LUNG
     Dosage: UNK MG, UNK
     Route: 048
     Dates: start: 20111219
  2. PREDNISONE TAB [Concomitant]
     Dosage: UNK
  3. NEXIUM [Concomitant]
     Dosage: UNK
  4. HYPERIUM [Concomitant]
  5. EUPRESSYL [Concomitant]
  6. SUTENT [Suspect]
     Dosage: UNK
     Route: 048
  7. CRESTOR [Suspect]
     Dosage: UNK
  8. BACTRIM [Suspect]
     Indication: PROPHYLAXIS
     Dosage: UNK
     Dates: end: 20120101
  9. AMLODIPINE BESYLATE [Concomitant]
     Dosage: UNK
  10. OMIX [Concomitant]
     Dosage: UNK
  11. CINACALCET [Concomitant]
  12. CERTICAN [Suspect]
     Indication: RENAL TRANSPLANT
     Dosage: UNK
     Dates: start: 20111101
  13. PENTAMIDINE ISETHIONATE [Concomitant]
  14. GLUCOPHAGE [Concomitant]
  15. IMOVANE [Concomitant]

REACTIONS (7)
  - INTERSTITIAL LUNG DISEASE [None]
  - CELL DEATH [None]
  - NEUTROPENIA [None]
  - DIARRHOEA [None]
  - PULMONARY ALVEOLAR HAEMORRHAGE [None]
  - INFLUENZA [None]
  - HEPATOJUGULAR REFLUX [None]
